FAERS Safety Report 5672350-2 (Version None)
Quarter: 2008Q1

REPORT INFORMATION
  Report Type: 
  Country: None (occurrence: None)
  Receive Date: 20080318
  Receipt Date: 20080318
  Transmission Date: 20080703
  Serious: Yes (Life-Threatening)
  Sender: FDA-Public Use
  Company Number: None

PATIENT
  Age: 45 Year
  Sex: Female
  Weight: 88.905 kg

DRUGS (3)
  1. LEVAQUIN [Suspect]
     Indication: CAT SCRATCH DISEASE
     Dosage: 1 Q D
  2. LEVAQUIN [Suspect]
     Indication: LYMPHADENOPATHY
     Dosage: 1 Q D
  3. LEVAQUIN [Suspect]
     Indication: NECK PAIN
     Dosage: 1 Q D

REACTIONS (4)
  - BURNING SENSATION [None]
  - HYPERHIDROSIS [None]
  - HYPERSENSITIVITY [None]
  - THROAT TIGHTNESS [None]
